FAERS Safety Report 15933781 (Version 1)
Quarter: 2019Q1

REPORT INFORMATION
  Report Type: Spontaneous
  Country: AU (occurrence: AU)
  Receive Date: 20190207
  Receipt Date: 20190207
  Transmission Date: 20190417
  Serious: Yes (Other)
  Sender: FDA-Public Use
  Company Number: AU-OTSUKA-2019_003194

PATIENT
  Age: 37 Year
  Sex: Female

DRUGS (7)
  1. PERICYAZINE [Concomitant]
     Active Substance: PERICIAZINE
     Indication: PRODUCT USED FOR UNKNOWN INDICATION
     Dosage: UNK
     Route: 065
  2. THIORIDAZINE [Concomitant]
     Active Substance: THIORIDAZINE
     Indication: PRODUCT USED FOR UNKNOWN INDICATION
     Dosage: UNK
     Route: 065
  3. SEROQUEL [Concomitant]
     Active Substance: QUETIAPINE FUMARATE
     Indication: PRODUCT USED FOR UNKNOWN INDICATION
     Dosage: 1500 MG, QD (900 MG IN MORNING AND 600 MG AT NIGHT)
     Route: 065
  4. RISPERDAL [Concomitant]
     Active Substance: RISPERIDONE
     Indication: PRODUCT USED FOR UNKNOWN INDICATION
     Dosage: UNK
     Route: 065
  5. ZYPREXA [Concomitant]
     Active Substance: OLANZAPINE
     Indication: PRODUCT USED FOR UNKNOWN INDICATION
     Dosage: UNK
     Route: 065
  6. ABILIFY [Suspect]
     Active Substance: ARIPIPRAZOLE
     Indication: SCHIZOPHRENIA
     Dosage: UNK
     Route: 065
  7. AMISULPRIDE [Concomitant]
     Active Substance: AMISULPRIDE
     Indication: PRODUCT USED FOR UNKNOWN INDICATION
     Dosage: UNK
     Route: 065

REACTIONS (11)
  - Thyroid function test abnormal [Unknown]
  - Blood urea decreased [Unknown]
  - Alanine aminotransferase increased [Unknown]
  - Blood sodium decreased [Unknown]
  - Blood prolactin increased [Unknown]
  - Vitamin B12 decreased [Unknown]
  - Platelet count decreased [Unknown]
  - Gamma-glutamyltransferase increased [Unknown]
  - Epilepsy [Recovered/Resolved]
  - White blood cell count decreased [Unknown]
  - Neutropenia [Unknown]
